FAERS Safety Report 18480666 (Version 1)
Quarter: 2020Q4

REPORT INFORMATION
  Report Type: Spontaneous
  Country: JP (occurrence: JP)
  Receive Date: 20201109
  Receipt Date: 20201109
  Transmission Date: 20210114
  Serious: Yes (Other)
  Sender: FDA-Public Use
  Company Number: JP-OTSUKA-2020_026741

PATIENT
  Sex: Female

DRUGS (5)
  1. EFFEXOR [Concomitant]
     Active Substance: VENLAFAXINE HYDROCHLORIDE
     Indication: DISSOCIATIVE DISORDER
     Dosage: UNK
     Route: 048
  2. DOPS [Concomitant]
     Active Substance: DROXIDOPA
     Indication: DISSOCIATIVE DISORDER
     Dosage: UNK
     Route: 048
  3. DEPAS [Concomitant]
     Indication: ANXIETY
     Dosage: UNK
     Route: 065
  4. QUETIAPINE. [Concomitant]
     Active Substance: QUETIAPINE
     Indication: ANXIETY
     Dosage: UNK
     Route: 065
  5. REXULTI [Suspect]
     Active Substance: BREXPIPRAZOLE
     Indication: DISSOCIATIVE DISORDER
     Dosage: UNK
     Route: 048

REACTIONS (12)
  - Suicide attempt [Unknown]
  - Suicidal ideation [Unknown]
  - Irritability [Unknown]
  - Dizziness [Unknown]
  - Hallucination [Unknown]
  - Decreased appetite [Unknown]
  - Delusion [Unknown]
  - Affect lability [Unknown]
  - Regressive behaviour [Unknown]
  - Product use in unapproved indication [Unknown]
  - Hyperventilation [Unknown]
  - Insomnia [Unknown]
